FAERS Safety Report 10994177 (Version 1)
Quarter: 2015Q2

REPORT INFORMATION
  Report Type: Spontaneous
  Country: JP (occurrence: JP)
  Receive Date: 20150407
  Receipt Date: 20150407
  Transmission Date: 20150821
  Serious: Yes (Hospitalization)
  Sender: FDA-Public Use
  Company Number: JP-ROCHE-1560672

PATIENT
  Age: 77 Year
  Sex: Female
  Weight: 37 kg

DRUGS (2)
  1. PACLITAXEL. [Suspect]
     Active Substance: PACLITAXEL
     Indication: BREAST CANCER METASTATIC
     Dosage: IT IS A REST ON ONE WEEK OF ADMINISTERING OF THREE WEEKS.?COMPLETED TREATMENT CYCLE NUMBER: 2?MOST R
     Route: 041
     Dates: start: 20141020
  2. AVASTIN [Suspect]
     Active Substance: BEVACIZUMAB
     Indication: BREAST CANCER METASTATIC
     Dosage: MOST RECENT DOSE PRIOR TO AE : 05/DEC/2014?TREATMENT LINE: 1?COMPLETED TREATMENT CYCLE NUMBER: 2
     Route: 041
     Dates: start: 20141020

REACTIONS (1)
  - Interstitial lung disease [Recovered/Resolved]

NARRATIVE: CASE EVENT DATE: 20141217
